FAERS Safety Report 9076800 (Version 1)
Quarter: 2013Q1

REPORT INFORMATION
  Report Type: Report from Study
  Country: US (occurrence: US)
  Receive Date: 20130129
  Receipt Date: 20130129
  Transmission Date: 20140127
  Serious: No
  Sender: FDA-Public Use
  Company Number: US-ABBOTT-12P-163-0944193-00

PATIENT
  Sex: Female
  Weight: 137.11 kg

DRUGS (10)
  1. HUMIRA 40 MG/0.8 ML PEN [Suspect]
     Indication: PSORIATIC ARTHROPATHY
     Dates: start: 20120312
  2. SYNTHROID [Concomitant]
     Indication: HYPOTHYROIDISM
  3. PRILOSEC [Concomitant]
     Indication: GASTROOESOPHAGEAL REFLUX DISEASE
  4. ACTOS [Concomitant]
     Indication: DIABETES MELLITUS
  5. LANTUS [Concomitant]
     Indication: PRODUCT USED FOR UNKNOWN INDICATION
     Dosage: EVERY DAY
  6. GLIPIZIDE [Concomitant]
     Indication: DIABETES MELLITUS
  7. GLUCOPHAGE [Concomitant]
     Indication: DIABETES MELLITUS
  8. TEGRETOL [Concomitant]
     Indication: PRODUCT USED FOR UNKNOWN INDICATION
  9. CORGEN [Concomitant]
     Indication: PRODUCT USED FOR UNKNOWN INDICATION
  10. METHOXTRATE [Concomitant]
     Indication: PRODUCT USED FOR UNKNOWN INDICATION

REACTIONS (1)
  - Pain in extremity [Recovered/Resolved]
